FAERS Safety Report 9502689 (Version 1)
Quarter: 2013Q1

REPORT INFORMATION
  Report Type: Spontaneous
  Country: US (occurrence: None)
  Receive Date: 20130225
  Receipt Date: 20130225
  Transmission Date: 20140127
  Serious: Yes (Hospitalization)
  Sender: FDA-Public Use
  Company Number: 2010-166

PATIENT
  Sex: 0

DRUGS (3)
  1. PRIALT [Suspect]
  2. BUPIVACAINE HYDROCHLORIDE [Suspect]
  3. DILAUDID (HYDROMORPHONE HYDROCHLORIDE) [Suspect]

REACTIONS (1)
  - Overdose [None]
